FAERS Safety Report 19087698 (Version 1)
Quarter: 2021Q2

REPORT INFORMATION
  Report Type: Report from Study
  Country: US (occurrence: US)
  Receive Date: 20210402
  Receipt Date: 20210402
  Transmission Date: 20210717
  Serious: Yes (Hospitalization)
  Sender: FDA-Public Use
  Company Number: US-BAYER-2021-103452

PATIENT
  Age: 79 Year
  Sex: Male

DRUGS (1)
  1. ADEMPAS [Suspect]
     Active Substance: RIOCIGUAT
     Indication: PULMONARY ARTERIAL HYPERTENSION
     Dosage: 1 MG, TID
     Route: 048
     Dates: start: 20210219

REACTIONS (4)
  - Nausea [None]
  - Decreased appetite [None]
  - Dizziness [None]
  - Hospitalisation [None]

NARRATIVE: CASE EVENT DATE: 2021
